FAERS Safety Report 6896319-5 (Version None)
Quarter: 2010Q3

REPORT INFORMATION
  Report Type: 
  Country: None (occurrence: None)
  Receive Date: 20100728
  Receipt Date: 20100720
  Transmission Date: 20110219
  Serious: Yes (Death)
  Sender: FDA-Public Use
  Company Number: 2010070023

PATIENT
  Age: 48 Year
  Sex: Male

DRUGS (17)
  1. ONSOLIS [Suspect]
     Indication: CANCER PAIN
     Dosage: (200 MCG,AS NEEDED UP TO 4 FILMS DAILY), BU
     Route: 002
     Dates: start: 20100601
  2. METOCLOPRAMIDE [Concomitant]
  3. ZOFRAN [Concomitant]
  4. EMEND [Concomitant]
  5. MAGIC MOUTHWASH (DECADRON, MAALOX, BENADRYL) [Concomitant]
  6. OXYCONTIN [Concomitant]
  7. OXYCODONE HCL [Concomitant]
  8. ATIVAN [Concomitant]
  9. AVINZA [Concomitant]
  10. MARINOL [Concomitant]
  11. SANCUSO (GRANISETRON) [Concomitant]
  12. LYRICA [Concomitant]
  13. DIFLUCAN [Concomitant]
  14. FUROSEMIDE [Concomitant]
  15. COMPAZINE (COMPAZINE) [Concomitant]
  16. LACTULOSE [Concomitant]
  17. TPN ELECTROLYTES IN PLASTIC CONTAINER [Concomitant]

REACTIONS (2)
  - GASTRIC CANCER [None]
  - MALIGNANT NEOPLASM PROGRESSION [None]
